FAERS Safety Report 7352152-1 (Version None)
Quarter: 2011Q1

REPORT INFORMATION
  Report Type: 
  Country: None (occurrence: None)
  Receive Date: 20110315
  Receipt Date: 20110301
  Transmission Date: 20110831
  Serious: Yes (Death, Life-Threatening, Other)
  Sender: FDA-Public Use
  Company Number: JP-BAYER-200913033BYL

PATIENT
  Sex: Male
  Weight: 63 kg

DRUGS (8)
  1. LOXONIN [Concomitant]
     Indication: CANCER PAIN
     Route: 048
     Dates: start: 20090815, end: 20090819
  2. AMLODIPINE [Concomitant]
     Indication: HYPERTENSION
     Dosage: MORNING
     Route: 048
     Dates: start: 20090810, end: 20090819
  3. NOVAMIN [Concomitant]
     Dosage: 10 MG (DAILY DOSE), , ORAL
     Route: 048
     Dates: start: 20090810, end: 20090819
  4. GASTROM [Concomitant]
     Indication: GASTRITIS
     Dosage: MORNING AND EVENING
     Route: 048
     Dates: start: 20090810, end: 20090819
  5. GASTER D [Concomitant]
     Indication: GASTRITIS
     Dosage: MORNING AND EVENING
     Route: 048
     Dates: start: 20090810, end: 20090819
  6. NEXAVAR [Suspect]
     Indication: HEPATIC NEOPLASM MALIGNANT
     Route: 048
     Dates: start: 20090810, end: 20090816
  7. NEXAVAR [Suspect]
     Dosage: MORNING(200MG),EVENING(400MG)
     Route: 048
     Dates: start: 20090817, end: 20090819
  8. OXYCONTIN [Suspect]
     Indication: CANCER PAIN
     Dosage: 10 MG (DAILY DOSE), , ORAL
     Route: 048
     Dates: start: 20090810, end: 20090819

REACTIONS (8)
  - NEUROLOGICAL SYMPTOM [None]
  - HEPATIC FAILURE [None]
  - JAUNDICE [None]
  - PALMAR-PLANTAR ERYTHRODYSAESTHESIA SYNDROME [None]
  - OESOPHAGEAL VARICES HAEMORRHAGE [None]
  - HEPATIC FUNCTION ABNORMAL [None]
  - HEPATIC ENCEPHALOPATHY [None]
  - RASH [None]
